FAERS Safety Report 9177986 (Version 1)
Quarter: 2012Q4

REPORT INFORMATION
  Report Type: 
  Country: US (occurrence: US)
  Receive Date: 20121016
  Receipt Date: 20121016
  Transmission Date: 20130627
  Serious: Yes (Other)
  Sender: FDA-Public Use
  Company Number: US-RB-034192-11

PATIENT
  Age: 20 None
  Sex: Female

DRUGS (1)
  1. SUBOXONE FILM [Suspect]
     Indication: DRUG DEPENDENCE
     Dosage: Suboxone film
     Route: 060
     Dates: start: 20110112

REACTIONS (2)
  - Exposure during pregnancy [Recovered/Resolved]
  - Selective abortion [Recovered/Resolved]
